FAERS Safety Report 4712788-0 (Version None)
Quarter: 2005Q3

REPORT INFORMATION
  Report Type: 
  Country: None (occurrence: None)
  Receive Date: 20050712
  Receipt Date: 20050712
  Transmission Date: 20060218
  Serious: Yes (Other)
  Sender: FDA-Public Use
  Company Number: None

PATIENT
  Sex: Male
  Weight: 77.1 kg

DRUGS (4)
  1. EPIRUBICIN [Suspect]
     Indication: GASTRIC CANCER
  2. CISPLATIN [Suspect]
     Dosage: IV D1
     Route: 042
  3. FLUOROURACIL [Suspect]
     Dosage: CI X21 DAYS 28 DAY CYCLE
  4. RADIATION [Suspect]

REACTIONS (7)
  - ABDOMINAL HERNIA [None]
  - ABDOMINAL PAIN UPPER [None]
  - ANASTOMOTIC LEAK [None]
  - INCISIONAL HERNIA [None]
  - SCAN ABDOMEN ABNORMAL [None]
  - TENDERNESS [None]
  - WEIGHT DECREASED [None]
